FAERS Safety Report 4631494-4 (Version None)
Quarter: 2005Q2

REPORT INFORMATION
  Report Type: 
  Country: None (occurrence: None)
  Receive Date: 20050407
  Receipt Date: 20050404
  Transmission Date: 20051028
  Serious: No
  Sender: FDA-Public Use
  Company Number: 2005-127054-NL

PATIENT
  Age: 71 Year
  Sex: Male

DRUGS (7)
  1. VECURONIUM BROMIDE [Suspect]
     Indication: ANAESTHESIA
     Dosage: SEE IMAGE
     Route: 040
     Dates: start: 20050328, end: 20050328
  2. FENTANYL CITRATE [Concomitant]
  3. PROPOFOL [Concomitant]
  4. FUROSEMIDE [Concomitant]
  5. POTASSIUM CHLORIDE [Concomitant]
  6. FAMOTIDINE [Concomitant]
  7. CEFAZOLIN [Concomitant]

REACTIONS (4)
  - ANAESTHETIC COMPLICATION NEUROLOGICAL [None]
  - DELAYED RECOVERY FROM ANAESTHESIA [None]
  - HYPOKINESIA [None]
  - HYPOPNOEA [None]
